FAERS Safety Report 5268409-4 (Version None)
Quarter: 2007Q1

REPORT INFORMATION
  Report Type: 
  Country: None (occurrence: None)
  Receive Date: 20070319
  Receipt Date: 20070314
  Transmission Date: 20070707
  Serious: Yes (Other)
  Sender: FDA-Public Use
  Company Number: US-GLAXOSMITHKLINE-A0643240A

PATIENT
  Sex: Female

DRUGS (5)
  1. ADVAIR DISKUS 100/50 [Suspect]
     Indication: ASTHMA
     Route: 055
     Dates: start: 20070221
  2. ALBUTEROL [Concomitant]
  3. ECOTRIN [Concomitant]
  4. VITAMIN B-12 [Concomitant]
  5. WOMENS MULTIVITAMIN [Concomitant]

REACTIONS (14)
  - AGGRESSION [None]
  - DYSPNOEA [None]
  - EYE DISORDER [None]
  - FATIGUE [None]
  - HEADACHE [None]
  - HOSTILITY [None]
  - INHALATION THERAPY [None]
  - NERVOUSNESS [None]
  - PRURITUS [None]
  - RASH [None]
  - RHINORRHOEA [None]
  - THROAT IRRITATION [None]
  - URTICARIA [None]
  - WEIGHT DECREASED [None]
